FAERS Safety Report 14375004 (Version 2)
Quarter: 2021Q1

REPORT INFORMATION
  Report Type: Spontaneous
  Country: FR (occurrence: FR)
  Receive Date: 20180111
  Receipt Date: 20210115
  Transmission Date: 20210419
  Serious: Yes (Other)
  Sender: FDA-Public Use
  Company Number: FR-UCBSA-2018000748

PATIENT
  Age: 29 Year
  Sex: Female
  Weight: 78 kg

DRUGS (7)
  1. ZONEGRAN [Suspect]
     Active Substance: ZONISAMIDE
     Dosage: 300 MG
     Route: 048
  2. FYCOMPA [Suspect]
     Active Substance: PERAMPANEL
     Dosage: 6 MG DAILY
     Route: 048
     Dates: start: 201601
  3. FYCOMPA [Suspect]
     Active Substance: PERAMPANEL
     Dosage: 2 MG DAILY
     Route: 048
     Dates: start: 201511, end: 201512
  4. ZONEGRAN [Suspect]
     Active Substance: ZONISAMIDE
     Dosage: 200 MG
     Route: 048
     Dates: start: 2017
  5. VIMPAT [Suspect]
     Active Substance: LACOSAMIDE
     Indication: EPILEPSY
     Dosage: 300 MG
     Route: 048
  6. ZONEGRAN [Suspect]
     Active Substance: ZONISAMIDE
     Indication: EPILEPSY
     Dosage: 250 MG
     Route: 048
     Dates: start: 201702, end: 2017
  7. FYCOMPA [Suspect]
     Active Substance: PERAMPANEL
     Indication: EPILEPSY
     Dosage: 4 MG DAILY
     Route: 048
     Dates: start: 201512, end: 201601

REACTIONS (2)
  - Maternal exposure during pregnancy [Unknown]
  - Premature delivery [Recovered/Resolved]

NARRATIVE: CASE EVENT DATE: 20170831
